FAERS Safety Report 10771830 (Version 1)
Quarter: 2015Q1

REPORT INFORMATION
  Report Type: Spontaneous
  Country: US (occurrence: US)
  Receive Date: 20150206
  Receipt Date: 20150206
  Transmission Date: 20150721
  Serious: Yes (Death, Hospitalization)
  Sender: FDA-Public Use
  Company Number: US-ASTRAZENECA-2014SE49627

PATIENT
  Age: 57 Year
  Sex: Male

DRUGS (24)
  1. METFORMIN HCL XR (NON-AZ PRODUCT) [Suspect]
     Active Substance: METFORMIN HYDROCHLORIDE
     Route: 065
  2. TENORMIN [Concomitant]
     Active Substance: ATENOLOL
  3. TRICOR [Concomitant]
     Active Substance: FENOFIBRATE
  4. ASPIRIN. [Concomitant]
     Active Substance: ASPIRIN
  5. BYETTA [Suspect]
     Active Substance: EXENATIDE
     Indication: TYPE 2 DIABETES MELLITUS
     Route: 065
  6. NEXIUM [Concomitant]
     Active Substance: ESOMEPRAZOLE MAGNESIUM
  7. GEMFIBROZIL. [Concomitant]
     Active Substance: GEMFIBROZIL
  8. GLIPIZIDE. [Concomitant]
     Active Substance: GLIPIZIDE
     Dosage: 1DF = 10 UNIT NOS
  9. INSULIN [Concomitant]
     Active Substance: INSULIN NOS
  10. GINKGO [Concomitant]
     Active Substance: GINKGO
  11. OLMESARTAN MEDOXOMIL + HCTZ [Concomitant]
     Active Substance: HYDROCHLOROTHIAZIDE\OLMESARTAN MEDOXOMIL
  12. SAW PALMETTO [Concomitant]
     Active Substance: SAW PALMETTO
  13. NIASPAN [Concomitant]
     Active Substance: NIACIN
  14. CHROMIUM [Concomitant]
     Active Substance: CHROMIC CHLORIDE\CHROMIUM
  15. GLUCOPHAGE [Concomitant]
     Active Substance: METFORMIN HYDROCHLORIDE
  16. CARDURA [Concomitant]
     Active Substance: DOXAZOSIN MESYLATE
  17. OMACOR [Concomitant]
     Active Substance: OMEGA-3-ACID ETHYL ESTERS
  18. GLUCOSAMINE [Concomitant]
     Active Substance: GLUCOSAMINE
  19. CHONDROITIN SULFATE (BOVINE) [Concomitant]
     Active Substance: CHONDROITIN SULFATE (BOVINE)
  20. VITAMIN B [Concomitant]
     Active Substance: VITAMIN B
  21. COZAAR [Concomitant]
     Active Substance: LOSARTAN POTASSIUM
  22. VYTORIN [Concomitant]
     Active Substance: EZETIMIBE\SIMVASTATIN
  23. COENZYME Q10 [Concomitant]
     Active Substance: UBIDECARENONE
  24. MULTIVITAMIN [Concomitant]
     Active Substance: VITAMINS

REACTIONS (12)
  - Multi-organ failure [Fatal]
  - Nausea [Unknown]
  - Flatulence [Unknown]
  - Pancreatitis acute [Fatal]
  - Shock [Fatal]
  - Brain oedema [Fatal]
  - Lactic acidosis [Unknown]
  - Decreased appetite [Unknown]
  - Anxiety [Unknown]
  - Fatigue [Unknown]
  - Sepsis [Fatal]
  - Dizziness [Unknown]

NARRATIVE: CASE EVENT DATE: 19970707
